FAERS Safety Report 6506172-7 (Version None)
Quarter: 2009Q4

REPORT INFORMATION
  Report Type: 
  Country: None (occurrence: None)
  Receive Date: 20091218
  Receipt Date: 20091210
  Transmission Date: 20100525
  Serious: Yes (Other)
  Sender: FDA-Public Use
  Company Number: US-ELI_LILLY_AND_COMPANY-US200912003714

PATIENT
  Sex: Female

DRUGS (5)
  1. HUMALOG [Suspect]
     Indication: DIABETES MELLITUS
     Dosage: 28 U, EACH MORNING
  2. HUMALOG [Suspect]
     Dosage: 34 U, OTHER
  3. HUMALOG [Suspect]
     Dosage: 40 U, EACH EVENING
  4. HUMALOG [Suspect]
     Dosage: 6 U, EACH EVENING
  5. LANTUS [Concomitant]

REACTIONS (4)
  - BLADDER PROLAPSE [None]
  - CATARACT [None]
  - DEPRESSION [None]
  - HYSTERECTOMY [None]
